FAERS Safety Report 25817816 (Version 2)
Quarter: 2025Q3

REPORT INFORMATION
  Report Type: Spontaneous
  Country: US (occurrence: US)
  Receive Date: 20250918
  Receipt Date: 20250926
  Transmission Date: 20251021
  Serious: No
  Sender: BAYER HEALTHCARE PHARMACEUTICALS INC.
  Company Number: US-BAYER-2025A119315

PATIENT
  Age: 77 Year
  Sex: Male

DRUGS (1)
  1. NUBEQA [Suspect]
     Active Substance: DAROLUTAMIDE
     Dates: start: 2025

REACTIONS (2)
  - Pruritus [Not Recovered/Not Resolved]
  - Rash pruritic [None]

NARRATIVE: CASE EVENT DATE: 20250901
